FAERS Safety Report 21102597 (Version 3)
Quarter: 2022Q3

REPORT INFORMATION
  Report Type: Report from Study
  Country: HU (occurrence: HU)
  Receive Date: 20220719
  Receipt Date: 20220728
  Transmission Date: 20221027
  Serious: Yes (Death, Hospitalization)
  Sender: FDA-Public Use
  Company Number: HU-ABBVIE-22K-076-4471761-00

PATIENT
  Sex: Male

DRUGS (2)
  1. CARBIDOPA\LEVODOPA [Suspect]
     Active Substance: CARBIDOPA\LEVODOPA
     Indication: Parkinson^s disease
     Dosage: MORNING DOSE: 9 ML; CONTINUOUS DOSE: 3.0 ML/HOUR; EXTRA DOSE: 2.0 ML
     Route: 050
     Dates: start: 20160316
  2. CARBIDOPA\LEVODOPA [Suspect]
     Active Substance: CARBIDOPA\LEVODOPA

REACTIONS (3)
  - Pneumonia [Fatal]
  - Embedded device [Not Recovered/Not Resolved]
  - Device difficult to use [Not Recovered/Not Resolved]

NARRATIVE: CASE EVENT DATE: 20220711
